FAERS Safety Report 9867398 (Version 2)
Quarter: 2014Q1

REPORT INFORMATION
  Report Type: Spontaneous
  Country: BE (occurrence: BE)
  Receive Date: 20140204
  Receipt Date: 20140303
  Transmission Date: 20141002
  Serious: Yes (Other)
  Sender: FDA-Public Use
  Company Number: PHHY2014BE012580

PATIENT
  Age: 62 Year
  Sex: Female

DRUGS (1)
  1. CERTICAN [Suspect]
     Indication: RENAL TRANSPLANT
     Dosage: 0.75 MG,
     Route: 048

REACTIONS (1)
  - Breast cancer stage IV [Not Recovered/Not Resolved]
